FAERS Safety Report 21994886 (Version 4)
Quarter: 2023Q2

REPORT INFORMATION
  Report Type: Spontaneous
  Country: US (occurrence: US)
  Receive Date: 20230215
  Receipt Date: 20230512
  Transmission Date: 20230722
  Serious: No
  Sender: FDA-Public Use
  Company Number: US-PFIZER INC-PV202300027749

PATIENT
  Age: 5 Year
  Sex: Female

DRUGS (2)
  1. GENOTROPIN [Suspect]
     Active Substance: SOMATROPIN
     Dosage: WITH A DOSAGE OF 1.0MG ALTERNATING WITH 1.2MG 7 DAYS PER WEEK
  2. GENOTROPIN [Suspect]
     Active Substance: SOMATROPIN
     Dosage: WITH A DOSAGE OF 1.0MG ALTERNATING WITH 1.2MG 7 DAYS PER WEEK

REACTIONS (1)
  - Device breakage [Unknown]
